FAERS Safety Report 18358761 (Version 1)
Quarter: 2020Q4

REPORT INFORMATION
  Report Type: Spontaneous
  Country: US (occurrence: US)
  Receive Date: 20201008
  Receipt Date: 20201008
  Transmission Date: 20210114
  Serious: No
  Sender: FDA-Public Use
  Company Number: NVSC2020US271555

PATIENT
  Age: 80 Year
  Sex: Female

DRUGS (2)
  1. VOLTAREN [Suspect]
     Active Substance: DICLOFENAC SODIUM
     Indication: MUSCLE SPASMS
     Dosage: UNK
     Route: 065
     Dates: start: 202009
  2. VOLTAREN [Suspect]
     Active Substance: DICLOFENAC SODIUM
     Indication: MUSCLE SPASMS

REACTIONS (6)
  - Drug effective for unapproved indication [Unknown]
  - Stomatitis [Unknown]
  - Product use in unapproved indication [Unknown]
  - Contraindicated product administered [Unknown]
  - Expired product administered [Unknown]
  - Oropharyngeal discomfort [Unknown]
